FAERS Safety Report 5097275-5 (Version None)
Quarter: 2006Q3

REPORT INFORMATION
  Report Type: 
  Country: None (occurrence: None)
  Receive Date: 20060906
  Receipt Date: 20060824
  Transmission Date: 20061208
  Serious: Yes (Hospitalization)
  Sender: FDA-Public Use
  Company Number: PHBS2006BR12882

PATIENT
  Age: 39 Year
  Sex: Male

DRUGS (3)
  1. CYCLOSPORINE [Suspect]
     Indication: HEART TRANSPLANT
     Dosage: 2 MG/KG/D
  2. MYCOPHENOLATE MOFETIL [Suspect]
     Indication: HEART TRANSPLANT
     Dosage: 2 G/D
  3. PREDNISONE (NGX) [Suspect]
     Indication: HEART TRANSPLANT
     Dosage: 0.3 MG/KG/D

REACTIONS (12)
  - ACUTE MYOCARDIAL INFARCTION [None]
  - AKINESIA [None]
  - ANGINA PECTORIS [None]
  - BLOOD CREATININE INCREASED [None]
  - CARDIOGENIC SHOCK [None]
  - CATHETERISATION CARDIAC ABNORMAL [None]
  - CORONARY ARTERY THROMBOSIS [None]
  - DRUG LEVEL DECREASED [None]
  - ELECTROCARDIOGRAM ABNORMAL [None]
  - HEART TRANSPLANT REJECTION [None]
  - RENAL FAILURE ACUTE [None]
  - TROPONIN INCREASED [None]
